FAERS Safety Report 10936782 (Version 2)
Quarter: 2015Q2

REPORT INFORMATION
  Report Type: Spontaneous
  Country: US (occurrence: US)
  Receive Date: 20150321
  Receipt Date: 20150525
  Transmission Date: 20150821
  Serious: Yes (Other)
  Sender: FDA-Public Use
  Company Number: US-JNJFOC-20140202884

PATIENT
  Age: 25 Year
  Sex: Female
  Weight: 68.04 kg

DRUGS (12)
  1. TOPAMAX [Suspect]
     Active Substance: TOPIRAMATE
     Indication: EPILEPSY
     Route: 048
     Dates: start: 2012, end: 2012
  2. ZONEGRAN [Suspect]
     Active Substance: ZONISAMIDE
     Indication: EPILEPSY
     Route: 065
     Dates: start: 2011
  3. NEURONTIN [Suspect]
     Active Substance: GABAPENTIN
     Indication: EPILEPSY
     Route: 065
  4. TOPAMAX [Suspect]
     Active Substance: TOPIRAMATE
     Indication: EPILEPSY
     Route: 048
     Dates: start: 2012
  5. TOPAMAX [Suspect]
     Active Substance: TOPIRAMATE
     Indication: EPILEPSY
     Route: 048
     Dates: start: 2012, end: 2012
  6. NEURONTIN [Suspect]
     Active Substance: GABAPENTIN
     Indication: EPILEPSY
     Route: 065
  7. VALIUM [Concomitant]
     Active Substance: DIAZEPAM
     Indication: TREMOR
     Dosage: 25MG/TABLET/25MG/MID-DAY/ORAL
     Route: 048
     Dates: start: 2013
  8. TOPAMAX [Suspect]
     Active Substance: TOPIRAMATE
     Indication: EPILEPSY
     Route: 048
     Dates: start: 2012
  9. PRIMIDONE. [Concomitant]
     Active Substance: PRIMIDONE
     Indication: EPILEPSY
     Dosage: 25MG/TABLET/50MG/AT NIGHT
     Route: 048
     Dates: start: 2013
  10. LACOSAMIDE [Suspect]
     Active Substance: LACOSAMIDE
     Indication: EPILEPSY
     Route: 065
  11. LACOSAMIDE [Suspect]
     Active Substance: LACOSAMIDE
     Indication: EPILEPSY
     Route: 065
  12. ZONEGRAN [Suspect]
     Active Substance: ZONISAMIDE
     Indication: EPILEPSY
     Route: 065
     Dates: start: 2011

REACTIONS (12)
  - Poisoning [Unknown]
  - Abnormal loss of weight [Unknown]
  - Vomiting [Unknown]
  - Eating disorder [Recovering/Resolving]
  - Hypertension [Recovering/Resolving]
  - Abasia [Recovering/Resolving]
  - Lethargy [Recovering/Resolving]
  - Feeling hot [Recovering/Resolving]
  - Seizure [Unknown]
  - Palpitations [Recovering/Resolving]
  - Defaecation urgency [Not Recovered/Not Resolved]
  - Language disorder [Unknown]

NARRATIVE: CASE EVENT DATE: 2012
